FAERS Safety Report 11542570 (Version 1)
Quarter: 2015Q3

REPORT INFORMATION
  Report Type: Spontaneous
  Country: US (occurrence: US)
  Receive Date: 20150903
  Receipt Date: 20150903
  Transmission Date: 20151125
  Serious: No
  Sender: FDA-Public Use
  Company Number: US-ELI_LILLY_AND_COMPANY-US201106008878

PATIENT
  Age: 79 Year
  Sex: Female

DRUGS (6)
  1. HUMALOG [Suspect]
     Active Substance: INSULIN LISPRO
     Dosage: 2 U, QD
     Dates: start: 2011
  2. METFORMIN [Concomitant]
     Active Substance: METFORMIN HYDROCHLORIDE
  3. LEVEMIR [Concomitant]
     Active Substance: INSULIN DETEMIR
  4. HUMALOG [Suspect]
     Active Substance: INSULIN LISPRO
     Indication: DIABETES MELLITUS
     Dosage: 4 U, EACH MORNING
     Dates: start: 2011
  5. ACTOS [Concomitant]
     Active Substance: PIOGLITAZONE HYDROCHLORIDE
  6. HUMALOG [Suspect]
     Active Substance: INSULIN LISPRO
     Dosage: 4 U, EACH EVENING
     Dates: start: 2011

REACTIONS (3)
  - Dizziness [Unknown]
  - Feeling abnormal [Unknown]
  - Fatigue [Unknown]
